FAERS Safety Report 20319803 (Version 2)
Quarter: 2022Q1

REPORT INFORMATION
  Report Type: Spontaneous
  Country: US (occurrence: None)
  Receive Date: 20220111
  Receipt Date: 20220112
  Transmission Date: 20220423
  Serious: Yes (Death)
  Sender: FDA-Public Use
  Company Number: US-ROCHE-2998930

PATIENT
  Age: 66 Year
  Sex: Male

DRUGS (3)
  1. ESBRIET [Suspect]
     Active Substance: PIRFENIDONE
     Indication: Interstitial lung disease
     Dosage: 267 MG 3 TIMES FOR 7 DAYS
     Route: 048
     Dates: start: 20210911
  2. ESBRIET [Suspect]
     Active Substance: PIRFENIDONE
     Dosage: 534 MG 3 TIMES FOR 7 DAYS
     Route: 048
  3. ESBRIET [Suspect]
     Active Substance: PIRFENIDONE
     Dosage: 801 MG 3 TIMES A DAY THEREAFTER
     Route: 048

REACTIONS (1)
  - Death [Fatal]

NARRATIVE: CASE EVENT DATE: 20211210
